FAERS Safety Report 7518932-4 (Version None)
Quarter: 2011Q2

REPORT INFORMATION
  Report Type: 
  Country: None (occurrence: None)
  Receive Date: 20110523
  Receipt Date: 20110508
  Transmission Date: 20111010
  Serious: Yes (Hospitalization)
  Sender: FDA-Public Use
  Company Number: VALP20110002

PATIENT
  Age: 29 Year
  Sex: Male

DRUGS (2)
  1. DIAZEPAM [Suspect]
     Indication: INSOMNIA
     Dosage: 75 MG, ORAL
     Route: 048
  2. VALPROIC ACID [Suspect]
     Indication: BIPOLAR DISORDER
     Dosage: 4 G, ORAL
     Route: 048

REACTIONS (12)
  - BALANCE DISORDER [None]
  - PUPILLARY REFLEX IMPAIRED [None]
  - VOMITING [None]
  - AMMONIA INCREASED [None]
  - BRAIN OEDEMA [None]
  - MYDRIASIS [None]
  - DEPRESSED LEVEL OF CONSCIOUSNESS [None]
  - AGITATION [None]
  - INTENTIONAL OVERDOSE [None]
  - ENCEPHALOPATHY [None]
  - VISUAL ACUITY REDUCED [None]
  - HEMIPARESIS [None]
